FAERS Safety Report 9644283 (Version 3)
Quarter: 2013Q4

REPORT INFORMATION
  Report Type: Spontaneous
  Country: JP (occurrence: JP)
  Receive Date: 20131025
  Receipt Date: 20131128
  Transmission Date: 20140711
  Serious: Yes (Hospitalization)
  Sender: FDA-Public Use
  Company Number: JP-AMGEN-JPNSP2013074537

PATIENT
  Age: 78 Year
  Sex: Female
  Weight: 45 kg

DRUGS (16)
  1. PRALIA [Suspect]
     Indication: OSTEOPOROSIS
     Dosage: 60 MG, QD
     Route: 058
     Dates: start: 20131001, end: 20131001
  2. ARANESP [Concomitant]
     Indication: NEPHROGENIC ANAEMIA
     Dosage: ONCE MONTHLY
     Route: 042
     Dates: start: 20120809, end: 20130606
  3. BREDININ [Concomitant]
     Indication: RHEUMATOID ARTHRITIS
     Route: 048
  4. MICARDIS [Concomitant]
     Indication: HYPERTENSION
     Route: 048
  5. BENITOWA [Concomitant]
     Indication: HYPERTENSION
     Route: 048
     Dates: end: 20131016
  6. RIDAURA [Concomitant]
     Indication: RHEUMATOID ARTHRITIS
     Route: 048
     Dates: end: 20131016
  7. RABEPRAZOLE [Concomitant]
     Indication: GASTROOESOPHAGEAL REFLUX DISEASE
     Route: 048
     Dates: end: 20131016
  8. LOXONIN [Concomitant]
     Indication: RHEUMATOID ARTHRITIS
     Route: 048
  9. FERROMIA [Concomitant]
     Indication: IRON DEFICIENCY ANAEMIA
     Route: 048
     Dates: start: 20111201
  10. SODIUM BICARBONATE [Concomitant]
     Indication: METABOLIC ACIDOSIS
     Route: 048
     Dates: start: 20111201
  11. ARGAMATE [Concomitant]
     Indication: HYPERKALAEMIA
     Route: 048
     Dates: start: 20121004, end: 20121031
  12. KAYEXALATE [Concomitant]
     Indication: HYPERKALAEMIA
     Route: 048
     Dates: start: 20130425, end: 20131016
  13. MOHRUS [Concomitant]
     Indication: BACK PAIN
     Dosage: UNKNOWN
     Route: 050
  14. HIRUDOID                           /00723701/ [Concomitant]
     Indication: DRY SKIN
     Dosage: UNKNOWN
     Route: 050
  15. JUVELA                             /00110502/ [Concomitant]
     Indication: DRY SKIN
     Dosage: UNKNOWN
     Route: 050
  16. JUVELA                             /00110502/ [Concomitant]
     Dosage: UNKNOWN
     Route: 050

REACTIONS (2)
  - Hypocalcaemia [Recovering/Resolving]
  - Electrocardiogram QT prolonged [Unknown]
